FAERS Safety Report 25273408 (Version 4)
Quarter: 2025Q3

REPORT INFORMATION
  Report Type: Spontaneous
  Country: EU (occurrence: EU)
  Receive Date: 20250506
  Receipt Date: 20250701
  Transmission Date: 20251020
  Serious: No
  Sender: PFIZER
  Company Number: EU-PFIZER INC-PV202500051725

PATIENT
  Age: 13 Year
  Sex: Male
  Weight: 42 kg

DRUGS (2)
  1. GENOTROPIN [Suspect]
     Active Substance: SOMATROPIN
     Indication: Growth hormone deficiency
     Dosage: 2 MG, DAILY, 6 DAYS AND 1 DAY OFF
     Route: 058
     Dates: start: 202402
  2. MEDITHYROX [Concomitant]
     Indication: Hypothyroidism
     Dosage: 75 MG, DAILY (1X1)

REACTIONS (3)
  - Poor quality device used [Unknown]
  - Device physical property issue [Unknown]
  - Device breakage [Unknown]

NARRATIVE: CASE EVENT DATE: 20250101
